FAERS Safety Report 18585857 (Version 1)
Quarter: 2020Q4

REPORT INFORMATION
  Report Type: Spontaneous
  Country: US (occurrence: US)
  Receive Date: 20201203
  Receipt Date: 20201203
  Transmission Date: 20210114
  Serious: Yes (Life-Threatening)
  Sender: FDA-Public Use
  Company Number: None

PATIENT
  Age: 29 Year
  Sex: Female
  Weight: 95.26 kg

DRUGS (1)
  1. YOUR TEDDY HEMP GUMMIES 2M MG [Suspect]
     Active Substance: CANNABIS SATIVA SEED OIL
     Indication: SLEEP DISORDER
     Route: 048
     Dates: start: 20201128, end: 20201129

REACTIONS (5)
  - Suicidal ideation [None]
  - Nightmare [None]
  - Hyperhidrosis [None]
  - Hallucination [None]
  - Failure of child resistant product closure [None]

NARRATIVE: CASE EVENT DATE: 20201129
